FAERS Safety Report 11413416 (Version 1)
Quarter: 2015Q3

REPORT INFORMATION
  Report Type: Spontaneous
  Country: US (occurrence: US)
  Receive Date: 20150824
  Receipt Date: 20150824
  Transmission Date: 20151125
  Serious: Yes (Other)
  Sender: FDA-Public Use
  Company Number: US-JNJFOC-20150813963

PATIENT
  Age: 83 Year
  Sex: Male
  Weight: 90.63 kg

DRUGS (11)
  1. FINASTERIDE. [Concomitant]
     Active Substance: FINASTERIDE
     Route: 065
  2. XARELTO [Suspect]
     Active Substance: RIVAROXABAN
     Indication: CEREBROVASCULAR ACCIDENT PROPHYLAXIS
     Route: 048
     Dates: start: 2015, end: 20150817
  3. ACETAMINOPHEN. [Concomitant]
     Active Substance: ACETAMINOPHEN
     Dosage: ONCE A DAY AS NEEDED.
     Route: 065
  4. LASIX [Concomitant]
     Active Substance: FUROSEMIDE
     Route: 065
  5. METOPROLOL TARTRATE. [Concomitant]
     Active Substance: METOPROLOL TARTRATE
     Route: 065
  6. PRAZOSIN [Concomitant]
     Active Substance: PRAZOSIN
     Route: 065
  7. FISH OIL [Concomitant]
     Active Substance: FISH OIL
     Route: 065
  8. XARELTO [Suspect]
     Active Substance: RIVAROXABAN
     Indication: ATRIAL FIBRILLATION
     Route: 048
     Dates: start: 2015, end: 20150817
  9. LISINOPRIL. [Concomitant]
     Active Substance: LISINOPRIL
     Route: 065
  10. SPIRONOLACTONE. [Concomitant]
     Active Substance: SPIRONOLACTONE
     Route: 065
  11. TRAMADOL. [Concomitant]
     Active Substance: TRAMADOL
     Dosage: EVERY 6 HOURS AS NEEDED FOR PAIN (NOTTAKING IT).
     Route: 065

REACTIONS (3)
  - International normalised ratio increased [Recovering/Resolving]
  - Prothrombin time prolonged [Unknown]
  - Surgery [Unknown]

NARRATIVE: CASE EVENT DATE: 20150817
